FAERS Safety Report 9454239 (Version 1)
Quarter: 2013Q3

REPORT INFORMATION
  Report Type: Spontaneous
  Country: US (occurrence: US)
  Receive Date: 20130812
  Receipt Date: 20130812
  Transmission Date: 20140515
  Serious: No
  Sender: FDA-Public Use
  Company Number: US-PFIZER INC-2013232720

PATIENT
  Sex: Female
  Weight: 124 kg

DRUGS (2)
  1. LIPITOR [Suspect]
     Indication: BLOOD CHOLESTEROL ABNORMAL
     Dosage: UNKNOWN DOSE, DAILY
     Dates: start: 2011
  2. LIPITOR [Suspect]
     Dosage: UNKNOWN DOSE, DAILY
     Dates: end: 2012

REACTIONS (2)
  - Headache [Recovered/Resolved]
  - Myalgia [Recovered/Resolved]
